FAERS Safety Report 8046166-6 (Version None)
Quarter: 2012Q1

REPORT INFORMATION
  Report Type: 
  Country: None (occurrence: None)
  Receive Date: 20120112
  Receipt Date: 20120112
  Transmission Date: 20120608
  Serious: Yes (Life-Threatening, Hospitalization)
  Sender: FDA-Public Use
  Company Number: None

PATIENT
  Age: 65 Year
  Sex: Male
  Weight: 78.2 kg

DRUGS (2)
  1. LEXISCAN [Suspect]
  2. LEXISCAN [Suspect]
     Indication: CARDIAC STRESS TEST
     Dosage: 0.4MG ONCE IV
     Route: 042
     Dates: start: 20120110

REACTIONS (5)
  - ACUTE RESPIRATORY DISTRESS SYNDROME [None]
  - UNRESPONSIVE TO STIMULI [None]
  - VENTRICULAR TACHYCARDIA [None]
  - HYPERTENSION [None]
  - NO THERAPEUTIC RESPONSE [None]
